FAERS Safety Report 9747880 (Version 1)
Quarter: 2013Q4

REPORT INFORMATION
  Report Type: Spontaneous
  Country: US (occurrence: US)
  Receive Date: 20131212
  Receipt Date: 20131212
  Transmission Date: 20140711
  Serious: No
  Sender: FDA-Public Use
  Company Number: US-TEVA-389349USA

PATIENT
  Age: 45 Year
  Sex: Female
  Weight: 56.75 kg

DRUGS (2)
  1. PARAGARD 380A [Suspect]
     Indication: CONTRACEPTION
     Route: 015
     Dates: start: 20130214, end: 20130225
  2. PRENATAL VITAMINS [Concomitant]

REACTIONS (3)
  - Metrorrhagia [Unknown]
  - Asthenia [Unknown]
  - Dizziness [Unknown]
